FAERS Safety Report 9558410 (Version 1)
Quarter: 2013Q3

REPORT INFORMATION
  Report Type: Spontaneous
  Country: US (occurrence: US)
  Receive Date: 20130926
  Receipt Date: 20130926
  Transmission Date: 20140515
  Serious: Yes (Hospitalization)
  Sender: FDA-Public Use
  Company Number: US-PFIZER INC-2013274024

PATIENT
  Age: 17 Year
  Sex: Female
  Weight: 75 kg

DRUGS (9)
  1. KETOROLAC TROMETHAMINE [Suspect]
     Indication: ANALGESIC THERAPY
     Dosage: 60MG, UNK
     Route: 030
  2. KETOROLAC TROMETHAMINE [Suspect]
     Dosage: 10 MG, 4X/DAY
     Route: 048
  3. NALBUPHINE [Concomitant]
     Indication: ANALGESIC THERAPY
     Dosage: 20 MG, UNK
  4. NALBUPHINE [Concomitant]
     Dosage: 10MG, UNK
  5. NALBUPHINE [Concomitant]
     Dosage: 10MG, UNK
  6. NALBUPHINE [Concomitant]
     Dosage: 5MG/H
  7. NALBUPHINE [Concomitant]
     Dosage: 10MG/H
  8. HYDROMORPHONE [Concomitant]
     Indication: ANALGESIC THERAPY
     Dosage: 0.017 MG/KG PER HOUR
  9. HYDROXYZINE PAMOATE [Concomitant]
     Indication: ANALGESIC THERAPY

REACTIONS (2)
  - Renal failure chronic [Not Recovered/Not Resolved]
  - Perirenal haematoma [Recovering/Resolving]
